FAERS Safety Report 16289709 (Version 1)
Quarter: 2019Q2

REPORT INFORMATION
  Report Type: Spontaneous
  Country: IR (occurrence: IR)
  Receive Date: 20190509
  Receipt Date: 20190509
  Transmission Date: 20190711
  Serious: Yes (Hospitalization, Disabling, Other)
  Sender: FDA-Public Use
  Company Number: IR-MICRO LABS LIMITED-ML2019-01133

PATIENT
  Age: 21 Year
  Sex: Female
  Weight: 67 kg

DRUGS (2)
  1. MEFENAMIC ACID. [Suspect]
     Active Substance: MEFENAMIC ACID
     Indication: MENORRHAGIA
  2. TRANEXAMIC ACID. [Interacting]
     Active Substance: TRANEXAMIC ACID
     Indication: HAEMOSTASIS
     Dosage: 2 VIALS OF INTRAVENOUS TRANEXAMIC ACID 500 MG
     Route: 042

REACTIONS (2)
  - Drug interaction [Unknown]
  - Deep vein thrombosis [Recovered/Resolved]
